FAERS Safety Report 6478564-6 (Version None)
Quarter: 2009Q4

REPORT INFORMATION
  Report Type: 
  Country: None (occurrence: None)
  Receive Date: 20091202
  Receipt Date: 20091118
  Transmission Date: 20100525
  Serious: Yes (Death)
  Sender: FDA-Public Use
  Company Number: 1000007277

PATIENT
  Age: 48 Year
  Sex: Male

DRUGS (5)
  1. CELEXA [Suspect]
     Dosage: 20 MG (20 MG,1 IN 1 D),ORAL ; 40 MG (40 MG,1 IN 1 D),ORAL
     Route: 048
     Dates: start: 20080101
  2. CELEXA [Suspect]
     Dosage: 20 MG (20 MG,1 IN 1 D),ORAL ; 40 MG (40 MG,1 IN 1 D),ORAL
     Route: 048
     Dates: start: 20080101
  3. WELLBUTRIN XL [Suspect]
     Indication: DEPRESSION
     Dosage: 300 MG (300 MG,1 IN 1 D),ORAL ; 450 MG (450 MG,1 IN 1 D),ORAL
     Route: 048
     Dates: start: 20080101, end: 20080101
  4. WELLBUTRIN XL [Suspect]
     Indication: DEPRESSION
     Dosage: 300 MG (300 MG,1 IN 1 D),ORAL ; 450 MG (450 MG,1 IN 1 D),ORAL
     Route: 048
     Dates: start: 20080101, end: 20080101
  5. ZOPICLONE (TABLETS) [Concomitant]

REACTIONS (1)
  - COMPLETED SUICIDE [None]
